FAERS Safety Report 6870586-6 (Version None)
Quarter: 2010Q3

REPORT INFORMATION
  Report Type: 
  Country: None (occurrence: None)
  Receive Date: 20100721
  Receipt Date: 20100713
  Transmission Date: 20110219
  Serious: Yes (Hospitalization)
  Sender: FDA-Public Use
  Company Number: 2010MA000759

PATIENT
  Age: 63 Year
  Sex: Male

DRUGS (6)
  1. DICLOFENAC SODIUM [Suspect]
     Indication: ARTHRITIS
     Dosage: 50 MG; TID; PO
     Route: 048
     Dates: end: 20100513
  2. CITALOPRAM [Concomitant]
  3. OMEPRAZOLE [Concomitant]
  4. FENOFIBRATE [Concomitant]
  5. GLUCOSAMINE [Concomitant]
  6. CHONDROITIN [Concomitant]

REACTIONS (3)
  - ABDOMINAL PAIN [None]
  - DIARRHOEA [None]
  - RECTAL HAEMORRHAGE [None]
